FAERS Safety Report 7936055-7 (Version None)
Quarter: 2011Q4

REPORT INFORMATION
  Report Type: 
  Country: None (occurrence: None)
  Receive Date: 20111121
  Receipt Date: 20111103
  Transmission Date: 20120403
  Serious: Yes (Hospitalization)
  Sender: FDA-Public Use
  Company Number: 2011MA016166

PATIENT
  Age: 36 Year
  Sex: Female

DRUGS (3)
  1. IBUPROFEN [Suspect]
     Indication: EAR PAIN
     Dosage: 600 MG; PO
     Route: 048
     Dates: start: 20090401, end: 20100301
  2. IBUPROFEN [Suspect]
     Indication: MYALGIA
     Dosage: 600 MG; PO
     Route: 048
     Dates: start: 20090401, end: 20100301
  3. AMOXICILLIN [Suspect]
     Indication: EAR INFECTION
     Dosage: 500 MG;TID;PO
     Route: 048
     Dates: start: 20090401

REACTIONS (6)
  - DRUG HYPERSENSITIVITY [None]
  - UNRESPONSIVE TO STIMULI [None]
  - FEELING COLD [None]
  - SIMILAR REACTION ON PREVIOUS EXPOSURE TO DRUG [None]
  - MENINGITIS ASEPTIC [None]
  - ENCEPHALITIS [None]
